FAERS Safety Report 5455226-5 (Version None)
Quarter: 2007Q3

REPORT INFORMATION
  Report Type: 
  Country: None (occurrence: None)
  Receive Date: 20070913
  Receipt Date: 20070913
  Transmission Date: 20080115
  Serious: Yes (Hospitalization)
  Sender: FDA-Public Use
  Company Number: None

PATIENT
  Age: 55 Year
  Sex: Male

DRUGS (2)
  1. ACETAMINOPHEN AND CODEINE PHOSPHATE [Suspect]
     Indication: PAIN
     Dosage: 30MG PRN PO
     Route: 048
     Dates: start: 20070701, end: 20070829
  2. METHADONE HCL [Suspect]
     Indication: PAIN
     Dosage: 5MG QID PO
     Route: 048
     Dates: start: 20070701, end: 20070829

REACTIONS (4)
  - ACCIDENTAL OVERDOSE [None]
  - CONFUSIONAL STATE [None]
  - HYPOTENSION [None]
  - SEDATION [None]
